FAERS Safety Report 9859337 (Version 1)
Quarter: 2014Q1

REPORT INFORMATION
  Report Type: Spontaneous
  Country: AU (occurrence: None)
  Receive Date: 20140128
  Receipt Date: 20140128
  Transmission Date: 20141002
  Serious: Yes (Death, Other)
  Sender: FDA-Public Use
  Company Number: AUR-APL-2014-00492

PATIENT
  Age: 30 Year
  Sex: Female

DRUGS (5)
  1. QUETIAPINE [Suspect]
     Indication: PRODUCT USED FOR UNKNOWN INDICATION
     Dosage: UNKNOWN
  2. DULOXETINE [Suspect]
     Indication: PRODUCT USED FOR UNKNOWN INDICATION
  3. PARACETAMOL [Suspect]
     Indication: PRODUCT USED FOR UNKNOWN INDICATION
  4. DIAZEPAM [Suspect]
     Indication: PRODUCT USED FOR UNKNOWN INDICATION
  5. METHADONE (METHADONE) [Suspect]

REACTIONS (2)
  - Toxicity to various agents [None]
  - Chronic hepatitis C [None]
